FAERS Safety Report 6686275-7 (Version None)
Quarter: 2010Q2

REPORT INFORMATION
  Report Type: 
  Country: None (occurrence: None)
  Receive Date: 20100414
  Receipt Date: 20100401
  Transmission Date: 20101027
  Serious: Yes (Other)
  Sender: FDA-Public Use
  Company Number: 2010BM000090

PATIENT
  Age: 31 Month
  Sex: Male
  Weight: 10 kg

DRUGS (2)
  1. NAGLAZYME [Suspect]
     Indication: MUCOPOLYSACCHARIDOSIS VI
     Dosage: 10 MG;QW;IVDRP
     Route: 041
     Dates: start: 20100101
  2. TRIMETON /00072502/ [Concomitant]

REACTIONS (7)
  - CRYING [None]
  - HYPERHIDROSIS [None]
  - HYPOTENSION [None]
  - INFUSION RELATED REACTION [None]
  - OXYGEN SATURATION DECREASED [None]
  - SKIN DISCOLOURATION [None]
  - TACHYCARDIA [None]
